FAERS Safety Report 23447149 (Version 1)
Quarter: 2024Q1

REPORT INFORMATION
  Report Type: Other
  Country: US (occurrence: None)
  Receive Date: 20240126
  Receipt Date: 20240126
  Transmission Date: 20240410
  Serious: Yes (Other)
  Sender: FDA-Public Use
  Company Number: US-ROCHE-3494309

PATIENT
  Age: 28 Year
  Sex: Female
  Weight: 90.8 kg

DRUGS (8)
  1. OCREVUS [Suspect]
     Active Substance: OCRELIZUMAB
     Indication: Relapsing-remitting multiple sclerosis
     Dosage: YES
     Route: 042
     Dates: start: 201912
  2. PREDNISONE [Concomitant]
     Active Substance: PREDNISONE
     Indication: Infection
  3. PREDNISONE [Concomitant]
     Active Substance: PREDNISONE
     Indication: Illness
  4. PREDNISONE [Concomitant]
     Active Substance: PREDNISONE
     Indication: Addison^s disease
  5. LAMOTRIGINE [Concomitant]
     Active Substance: LAMOTRIGINE
     Indication: Bipolar disorder
  6. GABAPENTIN [Concomitant]
     Active Substance: GABAPENTIN
     Indication: Pain
  7. DEPAKOTE [Concomitant]
     Active Substance: DIVALPROEX SODIUM
     Indication: Seizure
  8. SEROQUEL [Concomitant]
     Active Substance: QUETIAPINE FUMARATE
     Indication: Tachyphrenia

REACTIONS (8)
  - Brain neoplasm [Recovered/Resolved]
  - Addison^s disease [Not Recovered/Not Resolved]
  - Urinary tract infection [Recovered/Resolved]
  - Neuralgia [Recovering/Resolving]
  - Memory impairment [Not Recovered/Not Resolved]
  - Drug ineffective [Unknown]
  - Cognitive disorder [Not Recovered/Not Resolved]
  - Dysarthria [Not Recovered/Not Resolved]

NARRATIVE: CASE EVENT DATE: 20210101
